FAERS Safety Report 8287776-0 (Version None)
Quarter: 2012Q2

REPORT INFORMATION
  Report Type: 
  Country: None (occurrence: None)
  Receive Date: 20120416
  Receipt Date: 20120410
  Transmission Date: 20120825
  Serious: Yes (Death, Life-Threatening, Hospitalization, Disabling, Other)
  Sender: FDA-Public Use
  Company Number: US-MERCK-1204USA01274

PATIENT
  Age: 62 Year
  Sex: Male
  Weight: 30 kg

DRUGS (1)
  1. JANUVIA [Suspect]
     Indication: TYPE 2 DIABETES MELLITUS
     Route: 048

REACTIONS (3)
  - LIPASE INCREASED [None]
  - ABDOMINAL PAIN UPPER [None]
  - AMYLASE INCREASED [None]
